FAERS Safety Report 5948642-6 (Version None)
Quarter: 2008Q4

REPORT INFORMATION
  Report Type: 
  Country: None (occurrence: None)
  Receive Date: 20081111
  Receipt Date: 20081031
  Transmission Date: 20090506
  Serious: Yes (Hospitalization, Other)
  Sender: FDA-Public Use
  Company Number: US-MERCK-0708USA05623

PATIENT
  Age: 57 Year
  Sex: Female

DRUGS (3)
  1. FOSAMAX [Suspect]
     Indication: OSTEOPENIA
     Route: 048
     Dates: start: 20031112, end: 20060306
  2. SYNTHROID [Concomitant]
     Indication: HYPOTHYROIDISM
     Route: 065
     Dates: start: 19900101
  3. HORMONES (UNSPECIFIED) [Concomitant]
     Route: 065
     Dates: start: 19930101, end: 20060515

REACTIONS (4)
  - FRACTURE [None]
  - JOINT DISLOCATION [None]
  - ORAL INFECTION [None]
  - OSTEONECROSIS [None]
